FAERS Safety Report 8125266-6 (Version None)
Quarter: 2012Q1

REPORT INFORMATION
  Report Type: 
  Country: None (occurrence: None)
  Receive Date: 20120206
  Receipt Date: 20120123
  Transmission Date: 20120608
  Serious: Yes (Death)
  Sender: FDA-Public Use
  Company Number: IL-2012-0459

PATIENT
  Age: 62 Year
  Sex: Male

DRUGS (1)
  1. VINORELBINE [Suspect]
     Indication: LUNG SQUAMOUS CELL CARCINOMA STAGE UNSPECIFIED

REACTIONS (3)
  - MYOCARDIAL INFARCTION [None]
  - CARDIOTOXICITY [None]
  - CARDIOGENIC SHOCK [None]
